FAERS Safety Report 24691488 (Version 1)
Quarter: 2024Q4

REPORT INFORMATION
  Report Type: Spontaneous
  Country: FR (occurrence: FR)
  Receive Date: 20241203
  Receipt Date: 20241203
  Transmission Date: 20250114
  Serious: Yes (Life-Threatening)
  Sender: MYLAN
  Company Number: None

PATIENT
  Age: 62 Year
  Sex: Female
  Weight: 104 kg

DRUGS (5)
  1. CEFAZOLIN SODIUM [Suspect]
     Active Substance: CEFAZOLIN SODIUM
     Indication: Antibiotic prophylaxis
     Dosage: 4 GRAM, 1 TOTAL
     Route: 042
     Dates: start: 20230517, end: 20230517
  2. PROPOFOL [Suspect]
     Active Substance: PROPOFOL
     Indication: Anaesthesia
     Dosage: 200 MILLIGRAM, 1 TOTAL
     Route: 042
     Dates: start: 20230517, end: 20230517
  3. DEXAMETHASONE [Suspect]
     Active Substance: DEXAMETHASONE
     Indication: Prophylaxis of nausea and vomiting
     Dosage: 4 MILLIGRAM, 1 TOTAL
     Route: 042
     Dates: start: 20230517, end: 20230517
  4. ROCURONIUM BROMIDE [Suspect]
     Active Substance: ROCURONIUM BROMIDE
     Indication: Anaesthesia
     Dosage: 120 MILLIGRAM, 1 TOTAL
     Route: 042
     Dates: start: 20230517, end: 20230517
  5. KETALAR [Suspect]
     Active Substance: KETAMINE HYDROCHLORIDE
     Indication: Anaesthesia
     Dosage: 20 MILLIGRAM, 1 TOTAL
     Route: 042
     Dates: start: 20230517, end: 20230517

REACTIONS (3)
  - Bronchospasm [Recovered/Resolved]
  - Urticaria [Recovered/Resolved]
  - Hypotension [Recovered/Resolved]

NARRATIVE: CASE EVENT DATE: 20230517
